FAERS Safety Report 5647257-7 (Version None)
Quarter: 2008Q1

REPORT INFORMATION
  Report Type: 
  Country: None (occurrence: None)
  Receive Date: 20080228
  Receipt Date: 20080208
  Transmission Date: 20080703
  Serious: Yes (Hospitalization)
  Sender: FDA-Public Use
  Company Number: ENTC2008-0023

PATIENT
  Age: 83 Year
  Sex: Male

DRUGS (12)
  1. STALEVO 100 [Suspect]
     Indication: PARKINSON'S DISEASE
     Dosage: 150MG TDS ORAL; 100 TDS ORAL; 150MG QDS ORAL
     Route: 048
     Dates: start: 20071217, end: 20080122
  2. STALEVO 100 [Suspect]
     Indication: PARKINSON'S DISEASE
     Dosage: 150MG TDS ORAL; 100 TDS ORAL; 150MG QDS ORAL
     Route: 048
     Dates: start: 20070501
  3. SINEMET CR [Concomitant]
  4. TRIMETHOPRIM [Concomitant]
  5. ATENOLOL [Concomitant]
  6. CO-AMILOFRUSE [Concomitant]
  7. ASPIRIN [Concomitant]
  8. SIMVASTATIN [Concomitant]
  9. LACTULOSE [Concomitant]
  10. SENNA [Concomitant]
  11. ENOXAPARIN SODIUM [Concomitant]
  12. PARACETAMOL [Concomitant]

REACTIONS (5)
  - ATROPHY [None]
  - DEHYDRATION [None]
  - LOWER RESPIRATORY TRACT INFECTION [None]
  - NEUROLEPTIC MALIGNANT SYNDROME [None]
  - URINARY TRACT INFECTION [None]
